FAERS Safety Report 8160071-6 (Version None)
Quarter: 2012Q1

REPORT INFORMATION
  Report Type: 
  Country: None (occurrence: None)
  Receive Date: 20120103
  Receipt Date: 20111115
  Transmission Date: 20120608
  Serious: No
  Sender: FDA-Public Use
  Company Number: AE-2011-003501

PATIENT
  Age: 60 Year
  Sex: Female
  Weight: 56.246 kg

DRUGS (3)
  1. PEGASYS [Concomitant]
  2. RIBAVIRIN [Concomitant]
  3. INCIVEK [Suspect]
     Dosage: 2250 MG (1125 MG, 2 IN 1 D), ORAL
     Route: 048
     Dates: start: 20111112

REACTIONS (3)
  - HEADACHE [None]
  - FATIGUE [None]
  - BONE PAIN [None]
